FAERS Safety Report 10235240 (Version 1)
Quarter: 2014Q2

REPORT INFORMATION
  Report Type: Spontaneous
  Country: US (occurrence: None)
  Receive Date: 20140612
  Receipt Date: 20140612
  Transmission Date: 20141212
  Serious: Yes (Disabling, Other)
  Sender: FDA-Public Use
  Company Number: None

PATIENT
  Age: 6 Month
  Sex: Male
  Weight: 14.52 kg

DRUGS (2)
  1. HYDROCORTISONE [Suspect]
     Indication: ECZEMA
     Dosage: APPLY TO AFFECTED AREA?TWICE DAILY ?APPLIED TO A SURFACE, USUALLY THE SKIN
     Route: 061
  2. FLUOCINOLONE [Suspect]
     Indication: ECZEMA
     Dosage: APPLY TO BODY?TWICE DAILY?APPLIED TO A SURFACE, USUALLY THE SKIN
     Route: 061
     Dates: start: 20120430, end: 20130321

REACTIONS (5)
  - Eczema [None]
  - Drug withdrawal syndrome [None]
  - Skin burning sensation [None]
  - Pruritus [None]
  - Off label use [None]
